FAERS Safety Report 11207768 (Version 1)
Quarter: 2015Q2

REPORT INFORMATION
  Report Type: Report from Study
  Country: US (occurrence: US)
  Receive Date: 20150622
  Receipt Date: 20150622
  Transmission Date: 20150821
  Serious: No
  Sender: FDA-Public Use
  Company Number: US-ABBVIE-15P-163-1395709-00

PATIENT
  Sex: Female

DRUGS (1)
  1. VIEKIRA PAK [Suspect]
     Active Substance: DASABUVIR\OMBITASVIR\PARITAPREVIR\RITONAVIR
     Indication: HEPATITIS C
     Dosage: TAKE PER THE MANUFACTURERS DIRECTIONS AM AND PM
     Route: 065
     Dates: start: 20150422

REACTIONS (17)
  - Feeling abnormal [Unknown]
  - Visual impairment [Unknown]
  - Hypoaesthesia [Unknown]
  - Pain in extremity [Unknown]
  - Fall [Unknown]
  - Epistaxis [Unknown]
  - Dyspnoea [Unknown]
  - Faeces pale [Unknown]
  - Sinus congestion [Unknown]
  - Pruritus [Unknown]
  - Dizziness [Unknown]
  - Cough [Unknown]
  - Asthenia [Unknown]
  - Nausea [Unknown]
  - Peripheral swelling [Unknown]
  - Malaise [Unknown]
  - Decreased appetite [Unknown]
